FAERS Safety Report 7863781-0 (Version None)
Quarter: 2011Q4

REPORT INFORMATION
  Report Type: 
  Country: None (occurrence: None)
  Receive Date: 20111028
  Receipt Date: 20111024
  Transmission Date: 20120403
  Serious: Yes (Hospitalization)
  Sender: FDA-Public Use
  Company Number: US-BIOGENIDEC-2011BI032704

PATIENT
  Age: 40 Year
  Sex: Male

DRUGS (7)
  1. LEVETIRACETAM [Concomitant]
  2. OXYBUTYNIN [Concomitant]
  3. TYSABRI [Suspect]
     Indication: MULTIPLE SCLEROSIS
     Route: 042
     Dates: start: 20110811, end: 20110811
  4. OMEPRAZOLE [Concomitant]
  5. NORTRIPTYLINE HCL [Concomitant]
  6. BACLOFEN [Concomitant]
  7. CHOLECALCIFEROL [Concomitant]

REACTIONS (5)
  - MENINGITIS [None]
  - PNEUMONIA [None]
  - PYREXIA [None]
  - VIRAL INFECTION [None]
  - MULTIPLE SCLEROSIS RELAPSE [None]
